FAERS Safety Report 9032555 (Version 2)
Quarter: 2013Q1

REPORT INFORMATION
  Report Type: Spontaneous
  Country: US (occurrence: None)
  Receive Date: 20130109
  Receipt Date: 20130219
  Transmission Date: 20140127
  Serious: Yes (Other)
  Sender: FDA-Public Use
  Company Number: VAL_01247_2013

PATIENT
  Sex: Female

DRUGS (10)
  1. METOPROLOL [Suspect]
     Indication: PRODUCT USED FOR UNKNOWN INDICATION
  2. METOPROLOL [Suspect]
     Indication: BLOOD PRESSURE
  3. DIOVAN HCT [Suspect]
     Indication: PRODUCT USED FOR UNKNOWN INDICATION
     Route: 048
  4. WARFARIN [Concomitant]
     Indication: PRODUCT USED FOR UNKNOWN INDICATION
  5. LEVOXIL [Concomitant]
     Indication: PRODUCT USED FOR UNKNOWN INDICATION
  6. IRON [Concomitant]
  7. PRILOSEC [Concomitant]
  8. POTASSIUM CHLORIDE [Concomitant]
  9. OXCARBAZEPINE [Concomitant]
  10. SIMVASTATIN [Concomitant]

REACTIONS (12)
  - Malaise [None]
  - Nervousness [None]
  - Perforation bile duct [None]
  - Iatrogenic injury [None]
  - Haemorrhage [None]
  - Infection [None]
  - Abasia [None]
  - Clostridium difficile infection [None]
  - Viral infection [None]
  - Post procedural infection [None]
  - Deafness [None]
  - Cerumen impaction [None]
